FAERS Safety Report 21622145 (Version 4)
Quarter: 2022Q4

REPORT INFORMATION
  Report Type: Report from Study
  Country: IL (occurrence: IL)
  Receive Date: 20221121
  Receipt Date: 20221206
  Transmission Date: 20230113
  Serious: Yes (Death, Hospitalization, Other)
  Sender: FDA-Public Use
  Company Number: IL-ARGENX-2022-ARGX-IL002467

PATIENT

DRUGS (1)
  1. VYVGART [Suspect]
     Active Substance: EFGARTIGIMOD ALFA-FCAB
     Indication: Myasthenia gravis
     Dosage: 720 MG, 1/WEEK
     Route: 042
     Dates: start: 20220808, end: 20221116

REACTIONS (3)
  - Circulatory collapse [Fatal]
  - Myasthenia gravis crisis [Fatal]
  - Brain death [Fatal]

NARRATIVE: CASE EVENT DATE: 20221115
